FAERS Safety Report 5832382-8 (Version None)
Quarter: 2008Q3

REPORT INFORMATION
  Report Type: 
  Country: None (occurrence: None)
  Receive Date: 20080804
  Receipt Date: 20080409
  Transmission Date: 20090109
  Serious: Yes (Life-Threatening, Hospitalization)
  Sender: FDA-Public Use
  Company Number: JP-MERCK-0803USA02518

PATIENT
  Age: 66 Year
  Sex: Female

DRUGS (8)
  1. ZETIA [Suspect]
     Indication: HYPERLIPIDAEMIA
     Route: 048
     Dates: start: 20071018, end: 20080129
  2. AMLODIPINE BESYLATE [Concomitant]
     Route: 065
     Dates: start: 20071126, end: 20080129
  3. LANSOPRAZOLE [Concomitant]
     Route: 065
     Dates: start: 20080101
  4. IMIDAPRIL HYDROCHLORIDE [Concomitant]
     Route: 065
     Dates: start: 20071018, end: 20071125
  5. CEFCAPENE PIVOXIL HYDROCHLORIDE [Concomitant]
     Route: 065
     Dates: start: 20071029, end: 20071031
  6. LYSOZYME CHLORIDE [Concomitant]
     Route: 065
     Dates: start: 20071029, end: 20071031
  7. CLARITHROMYCIN [Concomitant]
     Route: 065
     Dates: start: 20071106, end: 20071111
  8. AMBROXOL HYDROCHLORIDE [Concomitant]
     Route: 065
     Dates: start: 20071106, end: 20071111

REACTIONS (2)
  - APLASTIC ANAEMIA [None]
  - PANCYTOPENIA [None]
